FAERS Safety Report 9858993 (Version 2)
Quarter: 2014Q1

REPORT INFORMATION
  Report Type: Spontaneous
  Country: JP (occurrence: JP)
  Receive Date: 20140131
  Receipt Date: 20140203
  Transmission Date: 20141002
  Serious: Yes (Life-Threatening, Hospitalization)
  Sender: FDA-Public Use
  Company Number: JP-ABBVIE-14P-087-1196171-00

PATIENT
  Age: 53 Year
  Sex: Female
  Weight: 59 kg

DRUGS (9)
  1. LUPRON DEPOT [Suspect]
     Indication: UTERINE LEIOMYOMA
     Route: 058
     Dates: start: 20121220, end: 20130227
  2. LUPRON DEPOT [Suspect]
     Route: 058
     Dates: start: 20131127
  3. TANATRIL [Concomitant]
     Indication: PRODUCT USED FOR UNKNOWN INDICATION
  4. CRESTOR [Concomitant]
     Indication: PRODUCT USED FOR UNKNOWN INDICATION
  5. ARTIST [Concomitant]
     Indication: PRODUCT USED FOR UNKNOWN INDICATION
  6. FERROMIA [Concomitant]
     Indication: PRODUCT USED FOR UNKNOWN INDICATION
  7. KREMEZIN [Concomitant]
     Indication: PRODUCT USED FOR UNKNOWN INDICATION
  8. SODIUM BICARBONATE [Concomitant]
     Indication: PRODUCT USED FOR UNKNOWN INDICATION
  9. NEXIUM [Concomitant]
     Indication: PRODUCT USED FOR UNKNOWN INDICATION

REACTIONS (1)
  - Shunt thrombosis [Recovering/Resolving]
